FAERS Safety Report 8232566-8 (Version None)
Quarter: 2012Q1

REPORT INFORMATION
  Report Type: 
  Country: None (occurrence: None)
  Receive Date: 20120323
  Receipt Date: 20120315
  Transmission Date: 20120608
  Serious: Yes (Hospitalization, Other)
  Sender: FDA-Public Use
  Company Number: US-ABBOTT-12P-163-0913731-00

PATIENT
  Sex: Female
  Weight: 56.75 kg

DRUGS (1)
  1. HUMIRA [Suspect]
     Indication: CROHN'S DISEASE
     Route: 058
     Dates: start: 20110901, end: 20111229

REACTIONS (8)
  - WHITE BLOOD CELLS URINE POSITIVE [None]
  - PNEUMONIA BACTERIAL [None]
  - MALAISE [None]
  - CROHN'S DISEASE [None]
  - COUGH [None]
  - BLOOD POTASSIUM DECREASED [None]
  - PYREXIA [None]
  - PALPITATIONS [None]
